FAERS Safety Report 9483793 (Version 4)
Quarter: 2013Q4

REPORT INFORMATION
  Report Type: Spontaneous
  Country: US (occurrence: US)
  Receive Date: 20130828
  Receipt Date: 20131121
  Transmission Date: 20140711
  Serious: Yes (Other)
  Sender: FDA-Public Use
  Company Number: US-PFIZER INC-2013245759

PATIENT
  Age: 64 Year
  Sex: Female
  Weight: 145 kg

DRUGS (2)
  1. DEPO-PROVERA [Suspect]
     Indication: UTERINE HAEMORRHAGE
     Dosage: UNK, EVERY THREE MONTHS
     Route: 030
  2. PROTONIX [Concomitant]
     Dosage: 40 MG, UNK

REACTIONS (2)
  - Diabetes mellitus [Unknown]
  - Off label use [Unknown]
